FAERS Safety Report 8469825-X (Version None)
Quarter: 2012Q2

REPORT INFORMATION
  Report Type: 
  Country: None (occurrence: None)
  Receive Date: 20120626
  Receipt Date: 20120612
  Transmission Date: 20120825
  Serious: Yes (Other)
  Sender: FDA-Public Use
  Company Number: CHPA2012US012765

PATIENT
  Age: 34 Year
  Sex: Female

DRUGS (1)
  1. EXCEDRIN (MIGRAINE) [Suspect]
     Indication: MIGRAINE
     Dosage: 6 DF, DAILY
     Route: 048
     Dates: start: 19980101

REACTIONS (3)
  - GASTRIC ULCER [None]
  - CROHN'S DISEASE [None]
  - OVERDOSE [None]
